FAERS Safety Report 9730668 (Version 1)
Quarter: 2013Q4

REPORT INFORMATION
  Report Type: Spontaneous
  Country: US (occurrence: US)
  Receive Date: 20131202
  Receipt Date: 20131202
  Transmission Date: 20140711
  Serious: No
  Sender: FDA-Public Use
  Company Number: US-AMGEN-USASP2013083477

PATIENT
  Age: 58 Year
  Sex: Female

DRUGS (9)
  1. ENBREL [Suspect]
     Indication: ANKYLOSING SPONDYLITIS
     Dosage: 50 MG, QWK
     Route: 065
     Dates: start: 20130719
  2. CYMBALTA [Concomitant]
     Dosage: UNK
     Route: 065
  3. AMPHETAMINE [Concomitant]
     Dosage: UNK
     Route: 065
  4. LASIX                              /00032601/ [Concomitant]
     Dosage: UNK
     Route: 065
  5. NEURONTIN [Concomitant]
     Dosage: UNK
     Route: 065
  6. ROBAXIN [Concomitant]
     Dosage: UNK
     Route: 065
  7. ZYRTEC [Concomitant]
     Dosage: UNK
     Route: 065
  8. LIBRIUM                            /00011501/ [Concomitant]
     Dosage: UNK
     Route: 065
  9. VITAMIN D                          /00107901/ [Concomitant]
     Dosage: UNK

REACTIONS (2)
  - Seasonal allergy [Not Recovered/Not Resolved]
  - Injection site pain [Not Recovered/Not Resolved]
